FAERS Safety Report 25164341 (Version 3)
Quarter: 2025Q2

REPORT INFORMATION
  Report Type: Spontaneous
  Country: US (occurrence: US)
  Receive Date: 20250405
  Receipt Date: 20250513
  Transmission Date: 20250716
  Serious: No
  Sender: GLAXOSMITHKLINE
  Company Number: US-GSK-US2025031035

PATIENT
  Sex: Female

DRUGS (2)
  1. BENLYSTA [Suspect]
     Active Substance: BELIMUMAB
     Indication: Systemic lupus erythematosus
  2. BENLYSTA [Suspect]
     Active Substance: BELIMUMAB
     Indication: Interstitial lung disease

REACTIONS (3)
  - Product dose omission issue [Unknown]
  - Off label use [Unknown]
  - Drug effective for unapproved indication [Unknown]
